FAERS Safety Report 24331258 (Version 3)
Quarter: 2025Q1

REPORT INFORMATION
  Report Type: Report from Study
  Country: US (occurrence: US)
  Receive Date: 20240918
  Receipt Date: 20250108
  Transmission Date: 20250409
  Serious: Yes (Other)
  Sender: NOVARTIS
  Company Number: US-002147023-NVSC2024US162651

PATIENT
  Age: 67 Year
  Sex: Female

DRUGS (1)
  1. LEQVIO [Suspect]
     Active Substance: INCLISIRAN SODIUM
     Indication: Product used for unknown indication
     Route: 058
     Dates: start: 202407

REACTIONS (10)
  - Renal impairment [Unknown]
  - Lower respiratory tract infection [Unknown]
  - Diarrhoea [Unknown]
  - Rash pruritic [Not Recovered/Not Resolved]
  - Fatigue [Unknown]
  - Confusional state [Unknown]
  - Weight increased [Unknown]
  - Nasopharyngitis [Unknown]
  - Influenza [Unknown]
  - COVID-19 [Unknown]

NARRATIVE: CASE EVENT DATE: 20240701
